FAERS Safety Report 4322306-7 (Version None)
Quarter: 2004Q1

REPORT INFORMATION
  Report Type: 
  Country: None (occurrence: None)
  Receive Date: 20040323
  Receipt Date: 20040323
  Transmission Date: 20041129
  Serious: No
  Sender: FDA-Public Use
  Company Number: None

PATIENT
  Age: 79 Year
  Sex: Female
  Weight: 79.3795 kg

DRUGS (1)
  1. INFED [Suspect]
     Indication: ANAEMIA
     Dosage: 1500 MG/500 ML NS 25CC TEST 1 DOSE (TEST)

REACTIONS (5)
  - ANXIETY [None]
  - BACK PAIN [None]
  - BLOOD PRESSURE INCREASED [None]
  - HEART RATE INCREASED [None]
  - RESTLESSNESS [None]
